FAERS Safety Report 9762864 (Version 2)
Quarter: 2014Q1

REPORT INFORMATION
  Report Type: Spontaneous
  Country: US (occurrence: US)
  Receive Date: 20131216
  Receipt Date: 20140213
  Transmission Date: 20141002
  Serious: Yes (Hospitalization)
  Sender: FDA-Public Use
  Company Number: US-B.I. PHARMACEUTICALS,INC./RIDGEFIELD-2013-BI-41782BP

PATIENT
  Sex: Female
  Weight: 95.25 kg

DRUGS (12)
  1. PRADAXA [Suspect]
     Indication: ATRIAL FIBRILLATION
     Dates: start: 20110805, end: 20120623
  2. PRADAXA [Suspect]
     Indication: PERIPHERAL ARTERIAL OCCLUSIVE DISEASE
  3. LASIX [Concomitant]
  4. CALCIUM CARBONATE [Concomitant]
  5. LABETALOL [Concomitant]
  6. AMLODIPINE [Concomitant]
  7. BENAZEPRIL [Concomitant]
  8. LYRICA [Concomitant]
  9. VITAMIN B12 [Concomitant]
  10. HYDROXYCHLOROQUINE [Concomitant]
  11. VESICARE [Concomitant]
  12. CENTRUM [Concomitant]

REACTIONS (1)
  - Lower gastrointestinal haemorrhage [Recovered/Resolved]
